FAERS Safety Report 16417433 (Version 1)
Quarter: 2019Q2

REPORT INFORMATION
  Report Type: Spontaneous
  Country: FR (occurrence: FR)
  Receive Date: 20190611
  Receipt Date: 20190611
  Transmission Date: 20190711
  Serious: Yes (Other)
  Sender: FDA-Public Use
  Company Number: FR-MYLANLABS-2019M1054540

PATIENT
  Age: 12 Year
  Sex: Female
  Weight: 45.3 kg

DRUGS (6)
  1. MESNA EG [Suspect]
     Active Substance: MESNA
     Indication: URINARY TRACT DISORDER PROPHYLAXIS
     Dosage: 5000 MILLIGRAM, QD
     Route: 042
     Dates: start: 20170821, end: 20170824
  2. LARGACTIL                          /00011901/ [Suspect]
     Active Substance: CHLORPROMAZINE
     Indication: ANTIEMETIC SUPPORTIVE CARE
     Dosage: 20 MILLIGRAM, QD
     Route: 041
     Dates: start: 20170823, end: 20170824
  3. HOLOXAN [Suspect]
     Active Substance: IFOSFAMIDE
     Indication: OSTEOSARCOMA
     Dosage: 4150 MILLIGRAM, QD
     Route: 042
     Dates: start: 20170821, end: 20170824
  4. ALOXI [Suspect]
     Active Substance: PALONOSETRON HYDROCHLORIDE
     Indication: ANTIEMETIC SUPPORTIVE CARE
     Dosage: 900 MILLIGRAM, QD
     Route: 041
     Dates: start: 20170821, end: 20170824
  5. DEXAMETHASONE. [Concomitant]
     Active Substance: DEXAMETHASONE
     Indication: ANTIEMETIC SUPPORTIVE CARE
     Dosage: 8 MILLIGRAM, Q8H
     Route: 042
     Dates: start: 20170821
  6. ETOPOSIDE. [Suspect]
     Active Substance: ETOPOSIDE
     Indication: OSTEOSARCOMA
     Dosage: 104 MILLIGRAM, QD
     Route: 042
     Dates: start: 20170821, end: 20170824

REACTIONS (5)
  - Somnolence [Recovered/Resolved]
  - Dyskinesia [Recovered/Resolved]
  - Asterixis [Recovered/Resolved]
  - Vertigo [Recovered/Resolved]
  - Malaise [Recovered/Resolved]

NARRATIVE: CASE EVENT DATE: 20170824
